FAERS Safety Report 14565300 (Version 1)
Quarter: 2018Q1

REPORT INFORMATION
  Report Type: Spontaneous
  Country: US (occurrence: US)
  Receive Date: 20180223
  Receipt Date: 20180223
  Transmission Date: 20180509
  Serious: No
  Sender: FDA-Public Use
  Company Number: US-009507513-1802USA011211

PATIENT
  Age: 70 Year
  Sex: Male

DRUGS (2)
  1. TACROLIMUS. [Concomitant]
     Active Substance: TACROLIMUS
  2. KEYTRUDA [Suspect]
     Active Substance: PEMBROLIZUMAB
     Indication: HEPATOCELLULAR CARCINOMA
     Dosage: 2 MG/KG, UNK
     Dates: start: 201611

REACTIONS (1)
  - Off label use [Unknown]

NARRATIVE: CASE EVENT DATE: 201611
